FAERS Safety Report 19305876 (Version 1)
Quarter: 2021Q2

REPORT INFORMATION
  Report Type: Spontaneous
  Country: EG (occurrence: EG)
  Receive Date: 20210525
  Receipt Date: 20210525
  Transmission Date: 20210717
  Serious: Yes (Other)
  Sender: FDA-Public Use
  Company Number: NVSC2021EG112286

PATIENT
  Age: 56 Year
  Sex: Female

DRUGS (2)
  1. XELODA [Concomitant]
     Active Substance: CAPECITABINE
     Indication: GASTRIC CANCER
     Dosage: UNK (DOSE WAS CALCULATED ACCORDING TO BODY SURFACE AREA) FOR 14 DAYS
     Route: 065
     Dates: start: 20210316
  2. OXALIPLATIN ^EBEWE^ [Suspect]
     Active Substance: OXALIPLATIN
     Indication: GASTRIC CANCER
     Dosage: 260 MG, EVERY 21 DAYS
     Route: 042
     Dates: start: 20210316

REACTIONS (2)
  - Dyspnoea [Recovered/Resolved]
  - Fatigue [Unknown]
